FAERS Safety Report 6753043 (Version 3)
Quarter: 2018Q3

REPORT INFORMATION
  Report Type: Spontaneous
  Country: JP (occurrence: JP)
  Receive Date: 20080910
  Receipt Date: 20180711
  Transmission Date: 20181010
  Serious: Yes (Death, Other)
  Sender: FDA-Public Use
  Company Number: PHHY2008JP20535

PATIENT
  Age: 90 Year
  Sex: Female
  Weight: 40 kg

DRUGS (11)
  1. VEEN?F [Concomitant]
     Active Substance: CALCIUM CHLORIDE\MAGNESIUM CHLORIDE\POTASSIUM CHLORIDE\SODIUM ACETATE\SODIUM CHLORIDE
     Indication: PRODUCT USED FOR UNKNOWN INDICATION
     Dosage: 500 ML, UNK
     Route: 065
     Dates: start: 20080902, end: 20080902
  2. EXJADE [Suspect]
     Active Substance: DEFERASIROX
     Indication: MYELODYSPLASTIC SYNDROME
  3. PURSENNID                               /SCH/ [Concomitant]
     Active Substance: SENNOSIDES A AND B
     Indication: CONSTIPATION
     Dosage: 1 DF, UNK
     Route: 048
     Dates: end: 20080829
  4. CEFMETAZOLE [Concomitant]
     Active Substance: CEFMETAZOLE
     Indication: INFECTION PROPHYLAXIS
     Dosage: 2 G, UNK
     Route: 065
     Dates: start: 20080831
  5. LASIX [Concomitant]
     Active Substance: FUROSEMIDE
     Indication: POLYURIA
     Dosage: 20 MG, UNK
     Route: 042
     Dates: start: 20080901
  6. MIYA?BM [Concomitant]
     Active Substance: CLOSTRIDIUM BUTYRICUM SPORES STRAIN M-55
     Indication: PRODUCT USED FOR UNKNOWN INDICATION
     Dosage: 2.0 G, UNK
     Route: 048
     Dates: end: 20080829
  7. EXJADE [Suspect]
     Active Substance: DEFERASIROX
     Indication: IRON OVERLOAD
     Dosage: 750 MG, QD
     Route: 048
     Dates: start: 20080820, end: 20080824
  8. OMEPRAL [Concomitant]
     Active Substance: OMEPRAZOLE
     Indication: PRODUCT USED FOR UNKNOWN INDICATION
     Dosage: 40 MG, UNK
     Route: 042
     Dates: start: 20080831
  9. MAGNESIUM OXIDE. [Concomitant]
     Active Substance: MAGNESIUM OXIDE
     Indication: CONSTIPATION
     Dosage: 0.5 G, UNK
     Route: 048
     Dates: end: 20080829
  10. SOLITA T [Concomitant]
     Indication: PRODUCT USED FOR UNKNOWN INDICATION
     Dosage: 1500 ML, UNK
     Route: 065
     Dates: start: 20080831
  11. LASIX [Concomitant]
     Active Substance: FUROSEMIDE
     Dosage: 60 MG, UNK
     Route: 042

REACTIONS (21)
  - Condition aggravated [Fatal]
  - Vasculitis gastrointestinal [Unknown]
  - Renal failure [Fatal]
  - Anuria [Fatal]
  - White blood cell count increased [Unknown]
  - Diarrhoea [Unknown]
  - Haematemesis [Fatal]
  - Neutrophil count increased [Unknown]
  - Gastrooesophageal reflux disease [Unknown]
  - Urine output decreased [Fatal]
  - Multiple organ dysfunction syndrome [Fatal]
  - Ascites [Fatal]
  - Hepatic failure [Fatal]
  - Respiratory failure [Fatal]
  - Renal impairment [Fatal]
  - Gastrointestinal haemorrhage [Fatal]
  - C-reactive protein increased [Unknown]
  - Cardiac failure [Fatal]
  - Gastrointestinal oedema [Fatal]
  - Inflammation [Unknown]
  - Enterocolitis [Unknown]

NARRATIVE: CASE EVENT DATE: 20080820
